FAERS Safety Report 22250264 (Version 1)
Quarter: 2023Q2

REPORT INFORMATION
  Report Type: Spontaneous
  Country: None (occurrence: DE)
  Receive Date: 20230425
  Receipt Date: 20230425
  Transmission Date: 20230721
  Serious: Yes (Hospitalization, Other)
  Sender: FDA-Public Use
  Company Number: DE-B.Braun Medical Inc.-2140765

PATIENT
  Age: 88 Year
  Sex: Female

DRUGS (8)
  1. METRONIDAZOLE [Suspect]
     Active Substance: METRONIDAZOLE
  2. TORSEMIDE [Suspect]
     Active Substance: TORSEMIDE
  3. CEFUROXIME [Suspect]
     Active Substance: CEFUROXIME
  4. CLINDAMYCIN [Suspect]
     Active Substance: CLINDAMYCIN
  5. CEFOTAXIME [Suspect]
     Active Substance: CEFOTAXIME SODIUM
  6. ERYTHROMYCIN [Suspect]
     Active Substance: ERYTHROMYCIN
  7. ALLOPURINOL [Suspect]
     Active Substance: ALLOPURINOL
  8. PANTOPRAZOLE [Suspect]
     Active Substance: PANTOPRAZOLE

REACTIONS (5)
  - Diarrhoea [Unknown]
  - Dizziness [Unknown]
  - Haematochezia [Unknown]
  - Electrolyte imbalance [Unknown]
  - Fall [Unknown]
